FAERS Safety Report 8127495-4 (Version None)
Quarter: 2012Q1

REPORT INFORMATION
  Report Type: 
  Country: None (occurrence: None)
  Receive Date: 20120210
  Receipt Date: 20120201
  Transmission Date: 20120608
  Serious: Yes (Hospitalization, Other)
  Sender: FDA-Public Use
  Company Number: US-BAYER-2011-039192

PATIENT
  Age: 26 Year
  Sex: Female
  Weight: 110 kg

DRUGS (21)
  1. YAZ [Suspect]
  2. PAIN MEDICATION [Concomitant]
     Dosage: UNK
     Dates: start: 20090512
  3. YAZ [Suspect]
     Indication: CONTRACEPTION
     Dosage: UNK
     Dates: start: 20080301, end: 20080801
  4. YAZ [Suspect]
     Indication: ACNE
  5. YASMIN [Suspect]
     Indication: ACNE
  6. YASMIN [Suspect]
     Indication: MENORRHAGIA
  7. DROSPIRENONE AND ETHINYL ESTRADIOL [Suspect]
     Indication: PREMENSTRUAL SYNDROME
  8. DROSPIRENONE AND ETHINYL ESTRADIOL [Suspect]
     Indication: MENORRHAGIA
  9. YAZ [Suspect]
     Indication: MENORRHAGIA
  10. DROSPIRENONE AND ETHINYL ESTRADIOL [Suspect]
  11. PREVACID [Concomitant]
     Indication: ABDOMINAL PAIN
     Dosage: 30 MG, QD
     Dates: start: 20090430, end: 20090508
  12. YASMIN [Suspect]
     Indication: CONTRACEPTION
     Dosage: UNK
     Dates: start: 20060601, end: 20080301
  13. YASMIN [Suspect]
     Indication: PREMENSTRUAL SYNDROME
  14. DROSPIRENONE AND ETHINYL ESTRADIOL [Suspect]
     Indication: ACNE
  15. MULTI-VITAMINS [Concomitant]
     Dosage: 1 TAB DAILY
  16. YAZ [Suspect]
     Indication: PREMENSTRUAL SYNDROME
  17. YASMIN [Suspect]
  18. DROSPIRENONE AND ETHINYL ESTRADIOL [Suspect]
     Indication: CONTRACEPTION
     Dosage: UNK
     Dates: start: 20080801, end: 20090508
  19. CLARITIN-D [Concomitant]
     Indication: MULTIPLE ALLERGIES
     Dosage: DAILY
  20. WELLBUTRIN [Concomitant]
     Dosage: UNK
     Dates: start: 20090501
  21. NSAID'S [Concomitant]
     Indication: BACK PAIN

REACTIONS (20)
  - PULMONARY INFARCTION [None]
  - EMOTIONAL DISTRESS [None]
  - PAIN [None]
  - HEART RATE INCREASED [None]
  - HYPOXIA [None]
  - CARDIAC DISORDER [None]
  - ABORTION INDUCED [None]
  - STRESS [None]
  - PULMONARY EMBOLISM [None]
  - PULMONARY VALVE INCOMPETENCE [None]
  - FEAR [None]
  - PULMONARY FIBROSIS [None]
  - CHEST PAIN [None]
  - DYSPNOEA [None]
  - HAEMOPTYSIS [None]
  - HYPERTENSION [None]
  - CARDIAC VENTRICULAR DISORDER [None]
  - ATRIAL THROMBOSIS [None]
  - FATIGUE [None]
  - ANXIETY [None]
